FAERS Safety Report 5868925-8 (Version None)
Quarter: 2008Q3

REPORT INFORMATION
  Report Type: 
  Country: None (occurrence: None)
  Receive Date: 20080903
  Receipt Date: 20080825
  Transmission Date: 20090109
  Serious: Yes (Hospitalization)
  Sender: FDA-Public Use
  Company Number: US-MERCK-0802USA04810

PATIENT
  Age: 55 Year
  Sex: Female
  Weight: 57 kg

DRUGS (2)
  1. FOSAMAX [Suspect]
     Indication: OSTEOPOROSIS
     Route: 048
     Dates: start: 20020801, end: 20051201
  2. FOSAMAX [Suspect]
     Indication: OSTEOPENIA
     Route: 048
     Dates: start: 20020801, end: 20051201

REACTIONS (17)
  - ARTHRALGIA [None]
  - BLOOD POTASSIUM ABNORMAL [None]
  - CHANGE OF BOWEL HABIT [None]
  - COLON ADENOMA [None]
  - DENTAL CARIES [None]
  - DERMATITIS [None]
  - ERYTHEMA [None]
  - HAEMATURIA [None]
  - INTERVERTEBRAL DISC PROTRUSION [None]
  - MUSCLE SPASMS [None]
  - OEDEMA PERIPHERAL [None]
  - PAIN IN JAW [None]
  - PERIODONTAL INFECTION [None]
  - POSTNASAL DRIP [None]
  - RESORPTION BONE INCREASED [None]
  - SPINAL OSTEOARTHRITIS [None]
  - TEMPOROMANDIBULAR JOINT SYNDROME [None]
